FAERS Safety Report 12970904 (Version 2)
Quarter: 2020Q3

REPORT INFORMATION
  Report Type: Spontaneous
  Country: US (occurrence: US)
  Receive Date: 20161123
  Receipt Date: 20200820
  Transmission Date: 20201102
  Serious: No
  Sender: FDA-Public Use
  Company Number: US-JAZZ-2014-US-015151

PATIENT
  Sex: Male
  Weight: 92.97 kg

DRUGS (5)
  1. XYREM [Suspect]
     Active Substance: SODIUM OXYBATE
     Indication: NARCOLEPSY
     Dosage: 3 G, BID
     Route: 048
     Dates: start: 2013, end: 2013
  2. XYREM [Suspect]
     Active Substance: SODIUM OXYBATE
     Dosage: 3 GRAM, SECOND DOSE
     Route: 048
  3. XYREM [Suspect]
     Active Substance: SODIUM OXYBATE
     Dosage: 2 GRAM, SECOND DOSE
     Route: 048
  4. XYREM [Suspect]
     Active Substance: SODIUM OXYBATE
     Indication: CATAPLEXY
     Dosage: 4.5 G, BID
     Route: 048
     Dates: start: 2013, end: 201411
  5. LISINOPRIL [LISINOPRIL DIHYDRATE] [Concomitant]
     Indication: BLOOD PRESSURE MEASUREMENT
     Dosage: UNK

REACTIONS (5)
  - Malaise [Unknown]
  - Pollakiuria [Unknown]
  - Limb injury [Recovering/Resolving]
  - Fall [Recovered/Resolved]
  - Head injury [Recovered/Resolved]

NARRATIVE: CASE EVENT DATE: 2013
